FAERS Safety Report 8490720-4 (Version None)
Quarter: 2012Q3

REPORT INFORMATION
  Report Type: 
  Country: None (occurrence: None)
  Receive Date: 20120706
  Receipt Date: 20120622
  Transmission Date: 20120928
  Serious: Yes (Death)
  Sender: FDA-Public Use
  Company Number: JP-AMGEN-JPNSP2012040514

PATIENT
  Age: 60 Year

DRUGS (1)
  1. ROMIPLATE [Suspect]
     Indication: PRODUCT USED FOR UNKNOWN INDICATION
     Dosage: 8 MUG/KG, QID
     Route: 058

REACTIONS (1)
  - CEREBRAL HAEMORRHAGE [None]
